FAERS Safety Report 10513708 (Version 1)
Quarter: 2014Q4

REPORT INFORMATION
  Report Type: Spontaneous
  Country: GB (occurrence: GB)
  Receive Date: 20141013
  Receipt Date: 20141013
  Transmission Date: 20150528
  Serious: No
  Sender: FDA-Public Use
  Company Number: GB-BAYER-2014-149883

PATIENT
  Age: 27 Year
  Sex: Female

DRUGS (1)
  1. CANESTEN PESSARY [Suspect]
     Active Substance: CLOTRIMAZOLE
     Dosage: UNK
     Dates: start: 20141006

REACTIONS (2)
  - Vaginal haemorrhage [None]
  - Muscle spasms [None]

NARRATIVE: CASE EVENT DATE: 20141007
